FAERS Safety Report 10090811 (Version 2)
Quarter: 2015Q3

REPORT INFORMATION
  Report Type: Spontaneous
  Country: US (occurrence: US)
  Receive Date: 20140421
  Receipt Date: 20150812
  Transmission Date: 20151125
  Serious: No
  Sender: FDA-Public Use
  Company Number: US-GILEAD-2012-0063143

PATIENT
  Age: 59 Year
  Sex: Male

DRUGS (9)
  1. MINOXIDIL. [Concomitant]
     Active Substance: MINOXIDIL
  2. TACROLIMUS. [Concomitant]
     Active Substance: TACROLIMUS
  3. FUROSEMIDE. [Concomitant]
     Active Substance: FUROSEMIDE
  4. AMLODIPINE [Concomitant]
     Active Substance: AMLODIPINE BESYLATE
  5. PREDNISONE. [Concomitant]
     Active Substance: PREDNISONE
     Indication: COR PULMONALE CHRONIC
  6. LETAIRIS [Suspect]
     Active Substance: AMBRISENTAN
     Indication: COR PULMONALE CHRONIC
     Dosage: 5 MG, QD
     Route: 048
     Dates: start: 20120910, end: 20121003
  7. METOPROLOL [Concomitant]
     Active Substance: METOPROLOL
  8. DIGOXIN. [Concomitant]
     Active Substance: DIGOXIN
  9. CLONIDINE. [Concomitant]
     Active Substance: CLONIDINE

REACTIONS (3)
  - Abdominal pain upper [Recovered/Resolved]
  - Oedema peripheral [Recovered/Resolved]
  - Nausea [Recovered/Resolved]

NARRATIVE: CASE EVENT DATE: 201209
